FAERS Safety Report 13415793 (Version 1)
Quarter: 2017Q2

REPORT INFORMATION
  Report Type: Spontaneous
  Country: US (occurrence: US)
  Receive Date: 20170406
  Receipt Date: 20170406
  Transmission Date: 20170830
  Serious: No
  Sender: FDA-Public Use
  Company Number: US-009507513-1703USA008865

PATIENT
  Sex: Female
  Weight: 76.19 kg

DRUGS (1)
  1. NUVARING [Suspect]
     Active Substance: ETHINYL ESTRADIOL\ETONOGESTREL
     Indication: MENSTRUATION IRREGULAR
     Dosage: 1 DF, Q3W
     Route: 067
     Dates: start: 20170304, end: 20170312

REACTIONS (7)
  - Nausea [Recovered/Resolved]
  - Headache [Recovered/Resolved]
  - Product use in unapproved indication [Unknown]
  - Intentional medical device removal by patient [Unknown]
  - Inappropriate schedule of drug administration [Unknown]
  - Product quality issue [Unknown]
  - Burning sensation [Recovering/Resolving]

NARRATIVE: CASE EVENT DATE: 201703
